FAERS Safety Report 4491111-3 (Version None)
Quarter: 2004Q4

REPORT INFORMATION
  Report Type: 
  Country: None (occurrence: None)
  Receive Date: 20041027
  Receipt Date: 20041019
  Transmission Date: 20050328
  Serious: Yes (Death, Hospitalization, Other)
  Sender: FDA-Public Use
  Company Number: 2004240010ES

PATIENT
  Age: 39 Year
  Sex: Male

DRUGS (1)
  1. LINEZOLID (LINEZOLID) TABLET [Suspect]
     Indication: PNEUMONIA
     Dosage: 600 MG, BID, ORAL
     Route: 048

REACTIONS (3)
  - ANAEMIA [None]
  - RENAL FAILURE [None]
  - RESPIRATORY FAILURE [None]
